FAERS Safety Report 18016165 (Version 1)
Quarter: 2020Q3

REPORT INFORMATION
  Report Type: Spontaneous
  Country: FR (occurrence: FR)
  Receive Date: 20200714
  Receipt Date: 20200714
  Transmission Date: 20201103
  Serious: Yes (Hospitalization)
  Sender: FDA-Public Use
  Company Number: FR-ASTRAZENECA-2020SE86421

PATIENT
  Age: 37 Year
  Sex: Male
  Weight: 90 kg

DRUGS (14)
  1. AZITHROMYCINE [Suspect]
     Active Substance: AZITHROMYCIN
     Route: 048
     Dates: start: 20200316, end: 20200326
  2. TAMIFLU [Suspect]
     Active Substance: OSELTAMIVIR PHOSPHATE
     Indication: INFLUENZA
     Route: 048
     Dates: start: 20200307, end: 20200312
  3. ESOMEPRAZOLE. [Suspect]
     Active Substance: ESOMEPRAZOLE MAGNESIUM
     Route: 048
     Dates: start: 20200602, end: 20200621
  4. DERINOX (NAPHAZOLINE NITRATE\PREDNISOLONE\PHENYLEPHRINE) [Suspect]
     Active Substance: NAPHAZOLINE NITRATE\PHENYLEPHRINE\PREDNISOLONE
     Route: 045
     Dates: start: 20200316, end: 20200321
  5. SYMBICORT [Suspect]
     Active Substance: BUDESONIDE\FORMOTEROL FUMARATE DIHYDRATE
     Dosage: 4 DOSAGE FORM DAILY
     Route: 055
     Dates: start: 20200311
  6. ACIDE FUSIDIQUE [Suspect]
     Active Substance: FUSIDIC ACID
     Route: 003
     Dates: start: 20200602, end: 20200621
  7. LEVOFLOXACINE [Suspect]
     Active Substance: LEVOFLOXACIN
     Route: 048
     Dates: start: 20200311, end: 20200325
  8. SERETIDE [Suspect]
     Active Substance: FLUTICASONE PROPIONATE\SALMETEROL XINAFOATE
     Dosage: 1000UG/INHAL DAILY
     Route: 055
     Dates: start: 20200515
  9. MUPIROCINE [Suspect]
     Active Substance: MUPIROCIN
     Route: 045
     Dates: start: 20200519, end: 20200526
  10. ACIDE CLAVULANIQUE [Suspect]
     Active Substance: CLAVULANIC ACID
     Route: 048
     Dates: start: 20200311, end: 20200325
  11. AMOXICILLINE [Suspect]
     Active Substance: AMOXICILLIN
     Route: 048
     Dates: start: 20200311, end: 20200325
  12. EBASTINE [Suspect]
     Active Substance: EBASTINE
     Indication: HYPERSENSITIVITY
     Route: 048
     Dates: start: 20200504, end: 20200518
  13. PARACETAMOL [Suspect]
     Active Substance: ACETAMINOPHEN
     Indication: PAIN
     Route: 048
     Dates: start: 20200307, end: 20200328
  14. SERESTA [Suspect]
     Active Substance: OXAZEPAM
     Indication: ANXIETY
     Route: 048
     Dates: end: 20200621

REACTIONS (1)
  - Pancreatitis acute [Recovering/Resolving]

NARRATIVE: CASE EVENT DATE: 20200620
